FAERS Safety Report 5953845-0 (Version None)
Quarter: 2008Q4

REPORT INFORMATION
  Report Type: 
  Country: None (occurrence: None)
  Receive Date: 20081114
  Receipt Date: 20071024
  Transmission Date: 20090506
  Serious: Yes (Death, Other)
  Sender: FDA-Public Use
  Company Number: US-PFIZER INC-2007090775

PATIENT
  Sex: Female

DRUGS (12)
  1. DILANTIN [Suspect]
     Indication: CONVULSION
     Dates: start: 20050401
  2. DILANTIN [Suspect]
     Indication: CONVULSION
     Dates: start: 20050401, end: 20050508
  3. POTASSIUM CHLORIDE [Concomitant]
     Indication: HYPOKALAEMIA
  4. MAGNESIUM SULFATE [Concomitant]
     Indication: HYPOMAGNESAEMIA
  5. BACTRIM [Concomitant]
  6. DIFLUCAN [Concomitant]
  7. DAPSONE [Concomitant]
  8. LASIX [Concomitant]
  9. PROMETHAZINE [Concomitant]
  10. BENADRYL [Concomitant]
  11. PROGRAF [Concomitant]
  12. VORICONAZOLE [Concomitant]

REACTIONS (3)
  - COLITIS [None]
  - MULTI-ORGAN FAILURE [None]
  - STEVENS-JOHNSON SYNDROME [None]
